FAERS Safety Report 17449949 (Version 2)
Quarter: 2020Q1

REPORT INFORMATION
  Report Type: Report from Study
  Country: US (occurrence: US)
  Receive Date: 20200224
  Receipt Date: 20200306
  Transmission Date: 20200409
  Serious: No
  Sender: FDA-Public Use
  Company Number: US-ASTRAZENECA-2020SE20385

PATIENT
  Sex: Male

DRUGS (1)
  1. BYDUREON [Suspect]
     Active Substance: EXENATIDE
     Indication: DIABETES MELLITUS
     Route: 065

REACTIONS (5)
  - Nephrocalcinosis [Unknown]
  - Inability to afford medication [Unknown]
  - Glycosylated haemoglobin increased [Unknown]
  - Injection site mass [Not Recovered/Not Resolved]
  - Nausea [Unknown]
